FAERS Safety Report 9753687 (Version 1)
Quarter: 2013Q4

REPORT INFORMATION
  Report Type: Spontaneous
  Country: US (occurrence: US)
  Receive Date: 20131213
  Receipt Date: 20131213
  Transmission Date: 20140711
  Serious: No
  Sender: FDA-Public Use
  Company Number: US-GILEAD-2009-0026060

PATIENT
  Sex: Female
  Weight: 81.65 kg

DRUGS (19)
  1. LETAIRIS [Suspect]
     Indication: PULMONARY ARTERIAL HYPERTENSION
     Route: 048
     Dates: start: 20090525
  2. JANUVIA [Concomitant]
  3. SK-AMITRIPTYLINE [Concomitant]
  4. PREMARIN [Concomitant]
  5. METOPROLOL [Concomitant]
  6. METFORMIN HCL [Concomitant]
  7. LISINOPRIL [Concomitant]
  8. SIMVASTATIN [Concomitant]
  9. BUPROPION [Concomitant]
  10. ASPARIN [Concomitant]
  11. VITAMIN D [Concomitant]
  12. VITAMIN B-COMPLEX [Concomitant]
  13. ACTOS [Concomitant]
  14. PRILOSEC [Concomitant]
  15. OMEGA 3 [Concomitant]
  16. DILTIAZEM [Concomitant]
  17. CLONIDINE HCL [Concomitant]
  18. CALCIUM + D [Concomitant]
  19. VITAMIN E [Concomitant]

REACTIONS (1)
  - Nasal congestion [Unknown]
